FAERS Safety Report 6796911-2 (Version None)
Quarter: 2010Q2

REPORT INFORMATION
  Report Type: 
  Country: None (occurrence: None)
  Receive Date: 20100520
  Receipt Date: 20090610
  Transmission Date: 20101027
  Serious: Yes (Other)
  Sender: FDA-Public Use
  Company Number: 2009226467

PATIENT
  Age: 68 Year
  Sex: Female

DRUGS (2)
  1. MEDROXYPROGESTERONE ACETATE [Suspect]
     Indication: HORMONE REPLACEMENT THERAPY
     Dosage: 2.5
  2. PREMARIN [Suspect]
     Dosage: 1.25 MG
     Dates: start: 19870101, end: 20020801

REACTIONS (1)
  - BREAST CANCER FEMALE [None]
